FAERS Safety Report 14603308 (Version 1)
Quarter: 2018Q1

REPORT INFORMATION
  Report Type: Report from Study
  Country: None (occurrence: US)
  Receive Date: 20180306
  Receipt Date: 20180306
  Transmission Date: 20180509
  Serious: Yes (Other)
  Sender: FDA-Public Use
  Company Number: US-ABBVIE-18K-163-2276653-00

PATIENT
  Sex: Female

DRUGS (1)
  1. HUMIRA [Suspect]
     Active Substance: ADALIMUMAB
     Indication: RHEUMATOID ARTHRITIS
     Route: 058
     Dates: start: 2017, end: 2018

REACTIONS (8)
  - Nasal ulcer [Unknown]
  - Carpal tunnel syndrome [Unknown]
  - Influenza like illness [Unknown]
  - Lupus-like syndrome [Unknown]
  - Dyskinesia [Unknown]
  - Fibromyalgia [Unknown]
  - Palpitations [Unknown]
  - Alopecia [Unknown]
